FAERS Safety Report 8120013-6 (Version None)
Quarter: 2012Q1

REPORT INFORMATION
  Report Type: 
  Country: None (occurrence: None)
  Receive Date: 20120207
  Receipt Date: 20120127
  Transmission Date: 20120608
  Serious: Yes (Hospitalization)
  Sender: FDA-Public Use
  Company Number: US-NOVOPROD-341993

PATIENT
  Age: 9 Year
  Sex: Male
  Weight: 21.7 kg

DRUGS (4)
  1. NORDITROPIN FLEXPRO [Suspect]
     Indication: HYPOPITUITARISM
     Dosage: 1.3 MG, 6 X WEEK
     Route: 058
     Dates: start: 20100604
  2. DDAVP [Concomitant]
     Indication: PRODUCT USED FOR UNKNOWN INDICATION
     Dosage: 0.2 MG, BID
     Route: 048
     Dates: start: 20040801
  3. CORTEF                             /00028601/ [Concomitant]
     Indication: PRODUCT USED FOR UNKNOWN INDICATION
     Dosage: 5MG AM; 2.5MG PM
     Route: 048
     Dates: start: 20020101
  4. SYNTHROID [Concomitant]
     Indication: PRODUCT USED FOR UNKNOWN INDICATION
     Dosage: 62.5 MG, QD
     Route: 048
     Dates: start: 20020101

REACTIONS (1)
  - JOINT DISLOCATION [None]
